FAERS Safety Report 9058461 (Version 4)
Quarter: 2013Q3

REPORT INFORMATION
  Report Type: Report from Study
  Country: JP (occurrence: JP)
  Receive Date: 20130211
  Receipt Date: 20130717
  Transmission Date: 20140515
  Serious: Yes (Other)
  Sender: FDA-Public Use
  Company Number: JP-JNJFOC-20130204045

PATIENT
  Age: 77 Year
  Sex: Female
  Weight: 48 kg

DRUGS (19)
  1. SIMPONI [Suspect]
     Indication: RHEUMATOID ARTHRITIS
     Route: 058
     Dates: start: 20130301
  2. SIMPONI [Suspect]
     Indication: RHEUMATOID ARTHRITIS
     Route: 058
     Dates: start: 20130201
  3. SIMPONI [Suspect]
     Indication: RHEUMATOID ARTHRITIS
     Route: 058
     Dates: start: 20121109
  4. SIMPONI [Suspect]
     Indication: RHEUMATOID ARTHRITIS
     Route: 058
     Dates: start: 20121207, end: 20121207
  5. ISCOTIN [Concomitant]
     Indication: PROPHYLAXIS
     Route: 048
  6. TAKEPRON [Concomitant]
     Indication: PROPHYLAXIS
     Route: 048
  7. SALAZOSULFAPYRIDINE [Concomitant]
     Indication: RHEUMATOID ARTHRITIS
  8. ACTONEL [Concomitant]
     Indication: OSTEOPOROSIS
     Route: 048
  9. ALFAROL [Concomitant]
     Indication: OSTEOPOROSIS
     Route: 048
  10. CELECOX [Concomitant]
     Indication: RHEUMATOID ARTHRITIS
     Route: 048
     Dates: end: 20130510
  11. CALCIUM LACTATE [Concomitant]
     Indication: OSTEOPOROSIS
     Route: 048
  12. BAKTAR [Concomitant]
     Indication: PROPHYLAXIS
     Route: 048
  13. GASTROM [Concomitant]
     Indication: PROPHYLAXIS
     Route: 048
  14. MUCOSTA [Concomitant]
     Indication: PROPHYLAXIS
  15. PYRIDOXAL CALCIUM PHOSPHATE [Concomitant]
     Indication: PROPHYLAXIS
     Route: 048
  16. MAGNESIUM OXIDE [Concomitant]
     Indication: PROPHYLAXIS
     Route: 048
  17. GASMOTIN [Concomitant]
     Indication: PROPHYLAXIS
     Route: 048
  18. PURSENNID [Concomitant]
     Indication: PROPHYLAXIS
     Route: 048
  19. ALOSENN [Concomitant]
     Indication: PROPHYLAXIS
     Route: 048

REACTIONS (2)
  - Gastroenteritis [Recovered/Resolved]
  - C-reactive protein increased [Recovered/Resolved]
